FAERS Safety Report 5975722-1 (Version None)
Quarter: 2008Q4

REPORT INFORMATION
  Report Type: 
  Country: None (occurrence: None)
  Receive Date: 20081202
  Receipt Date: 20081120
  Transmission Date: 20090506
  Serious: Yes (Hospitalization)
  Sender: FDA-Public Use
  Company Number: PHHY2008GB29762

PATIENT
  Sex: Female
  Weight: 79.8 kg

DRUGS (6)
  1. CLOZARIL [Suspect]
     Indication: SCHIZOPHRENIA
     Dosage: 550 MG/DAY
     Route: 048
     Dates: start: 20070801, end: 20081001
  2. SENNA [Concomitant]
     Indication: CONSTIPATION
     Dosage: 15 MG/DAY
     Route: 048
  3. OMEPRAZOLE [Concomitant]
     Indication: DYSPEPSIA
     Dosage: 80 MG/DAY
     Route: 048
     Dates: start: 20080801
  4. VALPROATE SODIUM [Concomitant]
     Indication: DYSKINESIA
     Dosage: 1200 MG/DAY
     Route: 048
     Dates: start: 20080905
  5. HYOSCINE HBR HYT [Concomitant]
     Dosage: 600 MCG/DAY
     Route: 048
  6. MAGNESIUM HYDROXIDE TAB [Concomitant]
     Indication: CONSTIPATION
     Dosage: 60 MG/DAY
     Route: 048
     Dates: start: 20080801

REACTIONS (6)
  - ASTHENIA [None]
  - CONFUSIONAL STATE [None]
  - DYSARTHRIA [None]
  - DYSKINESIA [None]
  - SENSORY DISTURBANCE [None]
  - SOMNOLENCE [None]
